FAERS Safety Report 13565174 (Version 3)
Quarter: 2018Q1

REPORT INFORMATION
  Report Type: Spontaneous
  Country: IT (occurrence: IT)
  Receive Date: 20170519
  Receipt Date: 20180227
  Transmission Date: 20180508
  Serious: Yes (Hospitalization)
  Sender: FDA-Public Use
  Company Number: IT-PFIZER INC-2017217870

PATIENT
  Age: 75 Year
  Sex: Male

DRUGS (3)
  1. CITALOPRAM [Suspect]
     Active Substance: CITALOPRAM HYDROBROMIDE
     Dosage: 1 DF, SINGLE
     Dates: start: 20170312, end: 20170312
  2. HALCION [Suspect]
     Active Substance: TRIAZOLAM
     Dosage: 1 DF, SINGLE
     Dates: start: 20170312, end: 20170312
  3. LEXOTAN [Suspect]
     Active Substance: BROMAZEPAM
     Dosage: 1 DF, SINGLE
     Dates: start: 20170312, end: 20170312

REACTIONS (3)
  - Intentional self-injury [Unknown]
  - Depressed level of consciousness [Recovering/Resolving]
  - Drug abuse [Recovering/Resolving]

NARRATIVE: CASE EVENT DATE: 20170312
